FAERS Safety Report 8502708-5 (Version None)
Quarter: 2012Q3

REPORT INFORMATION
  Report Type: 
  Country: None (occurrence: None)
  Receive Date: 20120711
  Receipt Date: 20120627
  Transmission Date: 20120928
  Serious: Yes (Other)
  Sender: FDA-Public Use
  Company Number: JP-PFIZER INC-2012163756

PATIENT
  Age: 74 Year
  Sex: Male

DRUGS (2)
  1. MIGLITOL [Suspect]
     Indication: DIABETES MELLITUS
     Dosage: UNK
  2. GLYBURIDE [Suspect]
     Indication: DIABETES MELLITUS
     Dosage: UNK
     Route: 048

REACTIONS (1)
  - HYPOGLYCAEMIA [None]
